FAERS Safety Report 10071544 (Version 1)
Quarter: 2014Q2

REPORT INFORMATION
  Report Type: Spontaneous
  Country: GB (occurrence: GB)
  Receive Date: 20140410
  Receipt Date: 20140410
  Transmission Date: 20141212
  Serious: Yes (Congenital Anomaly)
  Sender: FDA-Public Use
  Company Number: GB-ABBVIE-14P-167-1225198-00

PATIENT
  Sex: Male

DRUGS (1)
  1. VALPROATE SODIUM [Suspect]
     Indication: MATERNAL EXPOSURE TIMING UNSPECIFIED
     Route: 064

REACTIONS (10)
  - Coloboma [Unknown]
  - Foetal anticonvulsant syndrome [Unknown]
  - Torticollis [Unknown]
  - Hypospadias [Unknown]
  - Inguinal hernia [Unknown]
  - Growth retardation [Unknown]
  - Motor developmental delay [Unknown]
  - Learning disorder [Unknown]
  - Otitis media [Unknown]
  - Foetal exposure during pregnancy [Unknown]
